FAERS Safety Report 10365767 (Version 1)
Quarter: 2014Q3

REPORT INFORMATION
  Report Type: Spontaneous
  Country: US (occurrence: US)
  Receive Date: 20140806
  Receipt Date: 20140806
  Transmission Date: 20150326
  Serious: Yes (Other)
  Sender: FDA-Public Use
  Company Number: US-PFIZER INC-2014216303

PATIENT
  Age: 22 Year
  Sex: Male
  Weight: 86.17 kg

DRUGS (1)
  1. ADVIL MIGRAINE [Suspect]
     Active Substance: IBUPROFEN
     Indication: MIGRAINE
     Dosage: 400 MG, AS NEEDED (2CAPSULES OF 200MG IN A DAY AS NEEDED)
     Dates: start: 2014

REACTIONS (3)
  - Haemorrhage [Unknown]
  - Expired product administered [Unknown]
  - Gastric ulcer [Unknown]

NARRATIVE: CASE EVENT DATE: 201407
